FAERS Safety Report 19406164 (Version 1)
Quarter: 2021Q2

REPORT INFORMATION
  Report Type: Report from Study
  Country: DE (occurrence: DE)
  Receive Date: 20210611
  Receipt Date: 20210611
  Transmission Date: 20210717
  Serious: Yes (Other)
  Sender: FDA-Public Use
  Company Number: DE-SHIRE-DE202018682

PATIENT

DRUGS (8)
  1. TEDUGLUTIDE [Suspect]
     Active Substance: TEDUGLUTIDE
     Indication: SHORT-BOWEL SYNDROME
     Dosage: 0.05 MILLIGRAM/KILOGRAM, PN ADJUSTMENT 19.6 TO 15.4 1/WEEK DAILY INJECTION 0.05 MG/KG BW
     Route: 065
  2. PENCILLIN [Concomitant]
     Active Substance: PENICILLIN
     Indication: TONSILLITIS
     Dosage: 999 UNK, QD
     Route: 042
     Dates: start: 20200819, end: 20200826
  3. TAZOBAC [Concomitant]
     Active Substance: PIPERACILLIN SODIUM\TAZOBACTAM SODIUM
     Indication: PERFORATION
     Dosage: 4.5 GRAM, TID
     Route: 048
     Dates: start: 20200112, end: 20200119
  4. TEDUGLUTIDE [Suspect]
     Active Substance: TEDUGLUTIDE
     Indication: SHORT-BOWEL SYNDROME
     Dosage: 0.05 MILLIGRAM/KILOGRAM, PN ADJUSTMENT 19.6 TO 15.4 1/WEEK DAILY INJECTION 0.05 MG/KG BW
     Route: 065
  5. TEDUGLUTIDE [Suspect]
     Active Substance: TEDUGLUTIDE
     Indication: SHORT-BOWEL SYNDROME
     Dosage: 0.05 MILLIGRAM/KILOGRAM, PN ADJUSTMENT 19.6 TO 15.4 1/WEEK DAILY INJECTION 0.05 MG/KG BW
     Route: 065
  6. METAMIZOL [Concomitant]
     Active Substance: METAMIZOLE SODIUM
     Dosage: 40 GTTS (DROPS), PRN
     Route: 048
     Dates: start: 20200827
  7. TEDUGLUTIDE [Suspect]
     Active Substance: TEDUGLUTIDE
     Indication: SHORT-BOWEL SYNDROME
     Dosage: 0.05 MILLIGRAM/KILOGRAM, PN ADJUSTMENT 19.6 TO 15.4 1/WEEK DAILY INJECTION 0.05 MG/KG BW
     Route: 065
  8. PANTOPRAZOLE [Concomitant]
     Active Substance: PANTOPRAZOLE
     Dosage: 40 MILLIGRAM, BID
     Route: 048
     Dates: start: 20200930

REACTIONS (7)
  - Headache [Recovered/Resolved]
  - Impaired gastric emptying [Not Recovered/Not Resolved]
  - Procedural intestinal perforation [Recovered/Resolved]
  - Fluid overload [Recovered/Resolved]
  - Aphthous ulcer [Not Recovered/Not Resolved]
  - Substance use [Recovered/Resolved]
  - Flatulence [Not Recovered/Not Resolved]

NARRATIVE: CASE EVENT DATE: 201912
